FAERS Safety Report 7701442-9 (Version None)
Quarter: 2011Q3

REPORT INFORMATION
  Report Type: 
  Country: None (occurrence: None)
  Receive Date: 20110822
  Receipt Date: 20110811
  Transmission Date: 20111222
  Serious: Yes (Other)
  Sender: FDA-Public Use
  Company Number: CA-JNJFOC-20110806829

PATIENT
  Sex: Female
  Weight: 68.4 kg

DRUGS (3)
  1. REMICADE [Suspect]
     Route: 042
     Dates: start: 20110630
  2. REMICADE [Suspect]
     Indication: CROHN'S DISEASE
     Route: 042
     Dates: start: 20110614
  3. REMICADE [Suspect]
     Route: 042
     Dates: start: 20110811

REACTIONS (5)
  - ABDOMINAL PAIN LOWER [None]
  - FATIGUE [None]
  - DIARRHOEA HAEMORRHAGIC [None]
  - DECREASED APPETITE [None]
  - WEIGHT DECREASED [None]
